FAERS Safety Report 18366300 (Version 2)
Quarter: 2020Q4

REPORT INFORMATION
  Report Type: Spontaneous
  Country: RU (occurrence: RU)
  Receive Date: 20201009
  Receipt Date: 20201127
  Transmission Date: 20210114
  Serious: Yes (Other)
  Sender: FDA-Public Use
  Company Number: RU-NOVOPROD-758070

PATIENT
  Age: 53 Year
  Sex: Female
  Weight: 82 kg

DRUGS (4)
  1. ORTHOMOL [Concomitant]
     Dosage: UNK
     Route: 065
  2. TOTHEMA [Suspect]
     Active Substance: COPPER GLUCONATE\FERROUS GLUCONATE\MANGANESE GLUCONATE
     Indication: HAEMOGLOBIN DECREASED
     Dosage: 1 CAPS PER DAY
     Route: 065
     Dates: start: 202009, end: 20200925
  3. NOLIPREL [INDAPAMIDE;PERINDOPRIL ERBUMINE] [Concomitant]
     Indication: HYPERTENSION
     Dosage: 1/2 PER DAY
     Route: 065
  4. SAXENDA [Suspect]
     Active Substance: LIRAGLUTIDE
     Indication: OVERWEIGHT
     Dosage: 0.6 MG, QD
     Route: 058
     Dates: start: 202009, end: 20200925

REACTIONS (8)
  - Abdominal distension [Recovered/Resolved]
  - Diarrhoea haemorrhagic [Recovered/Resolved]
  - Pancreatic atrophy [Unknown]
  - Toxicity to various agents [Recovered/Resolved]
  - Asthenia [Recovered/Resolved]
  - Abdominal pain lower [Recovered/Resolved]
  - Hepatomegaly [Unknown]
  - Dyskinesia [Unknown]

NARRATIVE: CASE EVENT DATE: 20200925
